FAERS Safety Report 8008392-1 (Version None)
Quarter: 2011Q4

REPORT INFORMATION
  Report Type: 
  Country: None (occurrence: None)
  Receive Date: 20111227
  Receipt Date: 20111215
  Transmission Date: 20120403
  Serious: Yes (Hospitalization, Other)
  Sender: FDA-Public Use
  Company Number: US-ASTRAZENECA-2011SE76263

PATIENT
  Age: 77 Year
  Sex: Male
  Weight: 59 kg

DRUGS (11)
  1. AMITRIPTYLINE [Concomitant]
  2. COUMADIN [Concomitant]
  3. STILERAN [Concomitant]
  4. KOREG [Concomitant]
  5. LASIX [Concomitant]
  6. SEROQUEL [Suspect]
     Route: 048
  7. VITAMIN D [Concomitant]
  8. SEROQUEL [Suspect]
     Indication: SLEEP DISORDER
     Route: 048
     Dates: start: 20111001
  9. SEROQUEL [Suspect]
     Route: 048
  10. LASIX [Concomitant]
  11. SEROQUEL [Suspect]
     Indication: DEMENTIA
     Route: 048
     Dates: start: 20111001

REACTIONS (11)
  - CONDITION AGGRAVATED [None]
  - DYSARTHRIA [None]
  - FALL [None]
  - CARDIAC FAILURE [None]
  - MOVEMENT DISORDER [None]
  - DYSPNOEA [None]
  - CONFUSIONAL STATE [None]
  - WHEEZING [None]
  - TRANSIENT ISCHAEMIC ATTACK [None]
  - DRUG INEFFECTIVE [None]
  - OFF LABEL USE [None]
